FAERS Safety Report 7290400-7 (Version None)
Quarter: 2011Q1

REPORT INFORMATION
  Report Type: 
  Country: None (occurrence: None)
  Receive Date: 20110214
  Receipt Date: 20110204
  Transmission Date: 20110831
  Serious: Yes (Other)
  Sender: FDA-Public Use
  Company Number: AU-ASTRAZENECA-2011SE06498

PATIENT
  Age: 57 Year
  Sex: Female

DRUGS (7)
  1. OXYCONTIN [Concomitant]
  2. PREMARIN [Concomitant]
     Indication: MENOPAUSE
  3. NEXIUM [Suspect]
     Indication: GASTROOESOPHAGEAL REFLUX DISEASE
     Route: 048
  4. VALIUM [Concomitant]
     Indication: STRESS
  5. MERSYNDOL FORTE [Concomitant]
     Indication: HEADACHE
     Dosage: TWO TO NINE TABLETS A DAY
  6. MERSYNDOL FORTE [Concomitant]
     Indication: PAIN
     Dosage: TWO TO NINE TABLETS A DAY
  7. MOGADON [Concomitant]

REACTIONS (3)
  - HEADACHE [None]
  - OVERDOSE [None]
  - SUICIDE ATTEMPT [None]
